FAERS Safety Report 14412815 (Version 6)
Quarter: 2021Q4

REPORT INFORMATION
  Report Type: Spontaneous
  Country: US (occurrence: US)
  Receive Date: 20180119
  Receipt Date: 20211116
  Transmission Date: 20220303
  Serious: Yes (Other)
  Sender: FDA-Public Use
  Company Number: US-PFIZER INC-2018021076

PATIENT
  Age: 66 Year
  Sex: Female

DRUGS (3)
  1. SOMAVERT [Suspect]
     Active Substance: PEGVISOMANT
     Dosage: 30 MG, DAILY
     Dates: start: 20131001
  2. SOMAVERT [Suspect]
     Active Substance: PEGVISOMANT
     Dosage: 30 MG, DAILY
     Route: 058
     Dates: start: 20131016
  3. SOMAVERT [Suspect]
     Active Substance: PEGVISOMANT
     Dosage: 30 MG, (7 WEEK)
     Dates: start: 20131016

REACTIONS (1)
  - Neoplasm [Unknown]
